FAERS Safety Report 4387601-4 (Version None)
Quarter: 2004Q2

REPORT INFORMATION
  Report Type: 
  Country: None (occurrence: None)
  Receive Date: 20040630
  Receipt Date: 20040517
  Transmission Date: 20050107
  Serious: No
  Sender: FDA-Public Use
  Company Number: US-GLAXOSMITHKLINE-A0511219A

PATIENT
  Sex: Female

DRUGS (1)
  1. ADVAIR HFA [Suspect]
     Indication: ASTHMA
     Route: 055

REACTIONS (7)
  - GINGIVAL SWELLING [None]
  - HYPERSENSITIVITY [None]
  - MASTICATION DISORDER [None]
  - ORAL PAIN [None]
  - ORAL SOFT TISSUE DISORDER [None]
  - PAIN [None]
  - TOOTHACHE [None]
